FAERS Safety Report 7933533-1 (Version None)
Quarter: 2011Q4

REPORT INFORMATION
  Report Type: 
  Country: None (occurrence: None)
  Receive Date: 20111122
  Receipt Date: 20111109
  Transmission Date: 20120403
  Serious: Yes (Hospitalization)
  Sender: FDA-Public Use
  Company Number: US-AMGEN-USASP2011058703

PATIENT
  Age: 59 Year
  Sex: Female

DRUGS (1)
  1. ENBREL [Suspect]
     Indication: RHEUMATOID ARTHRITIS
     Dosage: 50 MG, QWK
     Dates: start: 20110501, end: 20110801

REACTIONS (7)
  - SMALL INTESTINAL OBSTRUCTION [None]
  - THERAPEUTIC RESPONSE DECREASED [None]
  - RHEUMATOID ARTHRITIS [None]
  - INTESTINAL FISTULA [None]
  - ADHESION [None]
  - ABDOMINAL ABSCESS [None]
  - HERNIA [None]
